FAERS Safety Report 21065579 (Version 1)
Quarter: 2022Q3

REPORT INFORMATION
  Report Type: Spontaneous
  Country: DE (occurrence: DE)
  Receive Date: 20220711
  Receipt Date: 20220711
  Transmission Date: 20221027
  Serious: Yes (Death)
  Sender: FDA-Public Use
  Company Number: DE-DCGMA-22198627

PATIENT
  Age: 67 Year
  Sex: Female
  Weight: 50 kg

DRUGS (1)
  1. ENHERTU [Suspect]
     Active Substance: FAM-TRASTUZUMAB DERUXTECAN-NXKI
     Indication: Breast cancer metastatic
     Dosage: 270 MG
     Route: 065
     Dates: start: 20211221, end: 20220428

REACTIONS (2)
  - Cardiopulmonary failure [Fatal]
  - Pneumonitis [Fatal]

NARRATIVE: CASE EVENT DATE: 20220516
